FAERS Safety Report 17219143 (Version 1)
Quarter: 2019Q4

REPORT INFORMATION
  Report Type: Spontaneous
  Country: US (occurrence: US)
  Receive Date: 20191207
  Receipt Date: 20191207
  Transmission Date: 20200122
  Serious: No
  Sender: FDA-Public Use
  Company Number: None

PATIENT
  Age: 7 Year
  Sex: Male

DRUGS (1)
  1. HUMIRA [Suspect]
     Active Substance: ADALIMUMAB
     Indication: CROHN^S DISEASE
     Dosage: ?          OTHER FREQUENCY:DAY 1;?
     Route: 058
     Dates: start: 201911

REACTIONS (6)
  - Condition aggravated [None]
  - Psychomotor hyperactivity [None]
  - Disturbance in attention [None]
  - Abnormal behaviour [None]
  - Obsessive-compulsive disorder [None]
  - Insomnia [None]

NARRATIVE: CASE EVENT DATE: 201911
